FAERS Safety Report 5745033-8 (Version None)
Quarter: 2008Q2

REPORT INFORMATION
  Report Type: 
  Country: None (occurrence: None)
  Receive Date: 20080521
  Receipt Date: 20080515
  Transmission Date: 20081010
  Serious: Yes (Hospitalization)
  Sender: FDA-Public Use
  Company Number: JP-SANOFI-SYNTHELABO-A01200805446

PATIENT
  Sex: Male

DRUGS (9)
  1. KYTRIL [Concomitant]
     Dosage: UNK
     Dates: start: 20071016, end: 20071016
  2. AVASTIN [Suspect]
     Route: 041
     Dates: start: 20080507, end: 20080507
  3. FLUOROURACIL [Suspect]
     Route: 042
     Dates: start: 20080408, end: 20080409
  4. DAI-KENCHU-TO [Concomitant]
     Dosage: UNK
     Dates: start: 20071016
  5. 1 CONCOMITANT DRUG [Concomitant]
     Dosage: UNK
     Dates: start: 20071016
  6. RESTAMIN [Concomitant]
     Dosage: UNK
     Dates: start: 20071016, end: 20071016
  7. VOLTAREN [Concomitant]
     Dosage: UNK
     Dates: start: 20071016, end: 20071016
  8. ISOVORIN [Suspect]
     Route: 041
     Dates: start: 20080408, end: 20080409
  9. ELPLAT [Suspect]
     Indication: RECTAL CANCER METASTATIC
     Route: 041
     Dates: start: 20080408, end: 20080408

REACTIONS (9)
  - ALANINE AMINOTRANSFERASE ABNORMAL [None]
  - ASPARTATE AMINOTRANSFERASE ABNORMAL [None]
  - BLOOD BILIRUBIN ABNORMAL [None]
  - HAEMATURIA [None]
  - PLATELET COUNT ABNORMAL [None]
  - PROTEIN URINE [None]
  - RETINAL DETACHMENT [None]
  - RETINAL HAEMORRHAGE [None]
  - WHITE BLOOD CELL COUNT ABNORMAL [None]
